FAERS Safety Report 7445635-7 (Version None)
Quarter: 2011Q2

REPORT INFORMATION
  Report Type: 
  Country: None (occurrence: None)
  Receive Date: 20110429
  Receipt Date: 20110415
  Transmission Date: 20111010
  Serious: Yes (Life-Threatening, Hospitalization)
  Sender: FDA-Public Use
  Company Number: DE-ROCHE-749545

PATIENT
  Sex: Male
  Weight: 105 kg

DRUGS (3)
  1. MTX [Suspect]
     Indication: RHEUMATOID ARTHRITIS
     Route: 048
  2. TOCILIZUMAB [Suspect]
     Indication: RHEUMATOID ARTHRITIS
     Route: 042
     Dates: start: 20090401, end: 20100121
  3. PREDNISOLONE [Concomitant]
     Indication: RHEUMATOID ARTHRITIS
     Route: 048

REACTIONS (2)
  - METASTASES TO LYMPH NODES [None]
  - NON-SMALL CELL LUNG CANCER [None]
